FAERS Safety Report 10516826 (Version 2)
Quarter: 2014Q4

REPORT INFORMATION
  Report Type: Spontaneous
  Country: US (occurrence: US)
  Receive Date: 20141014
  Receipt Date: 20141126
  Transmission Date: 20150528
  Serious: Yes (Hospitalization)
  Sender: FDA-Public Use
  Company Number: US-BAYER-2014-151521

PATIENT
  Age: 30 Year
  Sex: Female
  Weight: 67.12 kg

DRUGS (6)
  1. HYDROXYZINE HCL [Concomitant]
     Active Substance: HYDROXYZINE HYDROCHLORIDE
  2. CETIRIZINE HYDROCHLORIDE. [Concomitant]
     Active Substance: CETIRIZINE HYDROCHLORIDE
  3. MUPIROCIN. [Concomitant]
     Active Substance: MUPIROCIN
  4. AMPICILLIN [Concomitant]
     Active Substance: AMPICILLIN
  5. MIRENA [Suspect]
     Active Substance: LEVONORGESTREL
     Indication: CONTRACEPTION
     Dosage: 20 MCG/24HR, CONT
     Route: 015
     Dates: start: 20110908, end: 20130206
  6. BETAMETHASON [BETAMETHASONE DIPROPIONATE,SALICYLIC ACID] [Concomitant]

REACTIONS (6)
  - Pain [None]
  - Depression [None]
  - Uterine perforation [None]
  - Injury [None]
  - Emotional distress [None]
  - Device issue [None]

NARRATIVE: CASE EVENT DATE: 201110
